FAERS Safety Report 8337289-2 (Version None)
Quarter: 2012Q2

REPORT INFORMATION
  Report Type: 
  Country: None (occurrence: None)
  Receive Date: 20120504
  Receipt Date: 20120427
  Transmission Date: 20120825
  Serious: Yes (Other)
  Sender: FDA-Public Use
  Company Number: US-JNJFOC-20120405600

PATIENT
  Sex: Male
  Weight: 81.65 kg

DRUGS (10)
  1. MULTIPLE VITAMIN [Concomitant]
     Indication: VITAMIN SUPPLEMENTATION
     Route: 048
  2. ASPIRIN [Concomitant]
  3. FISH OIL [Concomitant]
  4. OCUVITE (VITAMIN COMBINATIONS) [Concomitant]
  5. XARELTO [Suspect]
     Indication: THROMBOSIS PROPHYLAXIS
     Route: 048
     Dates: start: 20120301
  6. XARELTO [Suspect]
     Indication: ATRIAL FIBRILLATION
     Route: 048
     Dates: start: 20120301
  7. TERAZOSIN HCL [Concomitant]
     Indication: BLOOD PRESSURE
     Route: 048
  8. AMLODIPINE [Concomitant]
     Route: 048
  9. LISINOPRIL [Concomitant]
     Indication: BLOOD PRESSURE
     Route: 048
  10. LEXAPRO [Concomitant]
     Indication: PAIN

REACTIONS (3)
  - CONFUSIONAL STATE [None]
  - FATIGUE [None]
  - HYPERSOMNIA [None]
